FAERS Safety Report 14660929 (Version 1)
Quarter: 2018Q1

REPORT INFORMATION
  Report Type: Report from Study
  Country: US (occurrence: US)
  Receive Date: 20180320
  Receipt Date: 20180320
  Transmission Date: 20180509
  Serious: Yes (Death)
  Sender: FDA-Public Use
  Company Number: US-ACTELION-A-NJ2018-169257

PATIENT
  Age: 17 Year
  Sex: Female

DRUGS (6)
  1. TRILEPTAL [Concomitant]
     Active Substance: OXCARBAZEPINE
     Dosage: 1 DOSE, AS DIRECTED
     Route: 048
     Dates: start: 20121109, end: 20170630
  2. KEPPRA [Concomitant]
     Active Substance: LEVETIRACETAM
     Dosage: 1 DOSE, AS DIRECTED
     Dates: start: 20121109, end: 20170630
  3. TOPAMAX [Concomitant]
     Active Substance: TOPIRAMATE
     Dosage: 1 DOSE, AS DIRECTED
     Route: 048
     Dates: start: 20121109, end: 20170630
  4. ZAVESCA [Suspect]
     Active Substance: MIGLUSTAT
     Indication: NIEMANN-PICK DISEASE
     Dosage: 200 MG, TID
     Route: 049
     Dates: start: 20121116
  5. ADVAIR HFA [Concomitant]
     Active Substance: FLUTICASONE PROPIONATE\SALMETEROL XINAFOATE
     Dosage: 2 PUFF, BID
     Route: 055
     Dates: start: 20141218, end: 20170630
  6. DIAZEPAM. [Concomitant]
     Active Substance: DIAZEPAM
     Dosage: 1 DOSE, AS DIRECTED
     Route: 048
     Dates: start: 20121109, end: 20170630

REACTIONS (1)
  - Death [Fatal]

NARRATIVE: CASE EVENT DATE: 20170630
